FAERS Safety Report 7372349-4 (Version None)
Quarter: 2011Q1

REPORT INFORMATION
  Report Type: 
  Country: None (occurrence: None)
  Receive Date: 20110324
  Receipt Date: 20110316
  Transmission Date: 20110831
  Serious: Yes (Hospitalization)
  Sender: FDA-Public Use
  Company Number: B0707789A

PATIENT
  Sex: Female
  Weight: 68 kg

DRUGS (4)
  1. ANTI-THROMBIN [Concomitant]
     Indication: THROMBOSIS PROPHYLAXIS
  2. MELPHALAN [Suspect]
     Indication: MULTIPLE MYELOMA
     Dosage: 18MG PER DAY
     Route: 065
     Dates: start: 20101116
  3. THALIDOMIDE [Suspect]
     Indication: MULTIPLE MYELOMA
     Dosage: 200MG PER DAY
     Route: 048
     Dates: start: 20101116
  4. PREDNISOLONE [Suspect]
     Indication: MULTIPLE MYELOMA
     Dosage: 135MG PER DAY
     Route: 065
     Dates: start: 20101116

REACTIONS (2)
  - IRON DEFICIENCY ANAEMIA [None]
  - HAEMORRHAGIC EROSIVE GASTRITIS [None]
